FAERS Safety Report 10428440 (Version 2)
Quarter: 2014Q3

REPORT INFORMATION
  Report Type: Spontaneous
  Country: HR (occurrence: HR)
  Receive Date: 20140903
  Receipt Date: 20140908
  Transmission Date: 20150326
  Serious: Yes (Hospitalization)
  Sender: FDA-Public Use
  Company Number: HR-VIIV HEALTHCARE LIMITED-B1029244A

PATIENT
  Age: 51 Year
  Sex: Male

DRUGS (2)
  1. KIVEXA [Suspect]
     Active Substance: ABACAVIR SULFATE\LAMIVUDINE
     Indication: HIV INFECTION
     Route: 048
     Dates: start: 20130606, end: 20140417
  2. LOPINAVIR [Concomitant]
     Active Substance: LOPINAVIR
     Indication: HIV INFECTION

REACTIONS (1)
  - Myocardial infarction [Recovered/Resolved]

NARRATIVE: CASE EVENT DATE: 20140319
